FAERS Safety Report 5515941-1 (Version None)
Quarter: 2007Q4

REPORT INFORMATION
  Report Type: 
  Country: None (occurrence: None)
  Receive Date: 20071109
  Receipt Date: 20071030
  Transmission Date: 20080405
  Serious: Yes (Death)
  Sender: FDA-Public Use
  Company Number: A-CH2007-18047

PATIENT
  Age: 77 Year
  Sex: Male
  Weight: 80 kg

DRUGS (10)
  1. TRACLEER [Suspect]
     Indication: PULMONARY HYPERTENSION
     Dosage: 125 MG, BID, ORAL, 62.5 MG, BID, ORAL
     Route: 048
     Dates: start: 20051109, end: 20051208
  2. TRACLEER [Suspect]
     Indication: PULMONARY HYPERTENSION
     Dosage: 125 MG, BID, ORAL, 62.5 MG, BID, ORAL
     Route: 048
     Dates: start: 20051209, end: 20060916
  3. PLAVIX [Concomitant]
  4. VIAGRA [Concomitant]
  5. OMEPRAZOLE [Concomitant]
  6. ZESTRIL [Concomitant]
  7. LIPITOR [Concomitant]
  8. DILTIAZEM HYDROCHLORIDE [Concomitant]
  9. MEDROL [Concomitant]
  10. TRAMADOL HYDROCHLORIDE AND ACETAMINOPHEN [Concomitant]

REACTIONS (1)
  - METASTATIC CARCINOMA OF THE BLADDER [None]
